FAERS Safety Report 4484492-8 (Version None)
Quarter: 2004Q4

REPORT INFORMATION
  Report Type: 
  Country: None (occurrence: None)
  Receive Date: 20041025
  Receipt Date: 20041006
  Transmission Date: 20050328
  Serious: Yes (Death, Hospitalization)
  Sender: FDA-Public Use
  Company Number: PHBS2004JP13369

PATIENT
  Age: 0 None
  Sex: Male

DRUGS (7)
  1. SANDIMMUNE [Suspect]
     Indication: APLASIA PURE RED CELL
     Dosage: 100 MG/DAY
     Route: 048
     Dates: start: 19960307, end: 19970422
  2. MEDROL [Suspect]
     Indication: APLASIA PURE RED CELL
     Dosage: 10 MG/DAY
     Route: 048
     Dates: start: 19951016, end: 19970422
  3. ESPO [Concomitant]
     Indication: APLASIA PURE RED CELL
     Dosage: 375 IU THREE TIMES/WK
     Route: 058
     Dates: start: 19950912, end: 19951022
  4. IMMUNE GLOBULIN INTRAVENOUS (HUMAN) [Concomitant]
     Indication: APLASIA PURE RED CELL
     Dosage: 1.5 G/DAY
     Dates: start: 19951023, end: 19951027
  5. GRAN [Concomitant]
     Indication: INFECTION
  6. ANTIBIOTICS [Concomitant]
     Indication: INFECTION
  7. CYCLOPHOSPHAMIDE [Suspect]
     Indication: BONE MARROW CONDITIONING REGIMEN
     Route: 065

REACTIONS (8)
  - DISSEMINATED INTRAVASCULAR COAGULATION [None]
  - DRUG INEFFECTIVE [None]
  - INFECTION [None]
  - INTERSTITIAL LUNG DISEASE [None]
  - OBESITY [None]
  - PYREXIA [None]
  - RASH VESICULAR [None]
  - VARICELLA [None]
